FAERS Safety Report 9372683 (Version 1)
Quarter: 2013Q2

REPORT INFORMATION
  Report Type: Report from Study
  Country: US (occurrence: US)
  Receive Date: 20130627
  Receipt Date: 20130627
  Transmission Date: 20140414
  Serious: Yes (Hospitalization, Other)
  Sender: FDA-Public Use
  Company Number: US-MYLANLABS-2013S1005659

PATIENT
  Age: 54 Year
  Sex: Female

DRUGS (4)
  1. CLOZAPINE TABLETS [Suspect]
     Route: 048
     Dates: start: 20130221, end: 20130302
  2. PROZAC [Concomitant]
  3. HALDOL [Concomitant]
  4. LAMICTAL [Concomitant]

REACTIONS (1)
  - Convulsion [Recovered/Resolved]
